FAERS Safety Report 16904493 (Version 1)
Quarter: 2019Q4

REPORT INFORMATION
  Report Type: Spontaneous
  Country: US (occurrence: CH)
  Receive Date: 20191010
  Receipt Date: 20191010
  Transmission Date: 20200122
  Serious: Yes (Other)
  Sender: FDA-Public Use
  Company Number: CH-TEVA-2019-CH-1121093

PATIENT
  Age: 73 Year
  Sex: Male

DRUGS (6)
  1. FILGRASTIM [Concomitant]
     Active Substance: FILGRASTIM
  2. SITAGLIPTIN [Concomitant]
     Active Substance: SITAGLIPTIN
  3. PANTOPRAZOLE [Suspect]
     Active Substance: PANTOPRAZOLE
     Indication: ANTACID THERAPY
     Route: 065
  4. OXYCODONE [Interacting]
     Active Substance: OXYCODONE
     Route: 065
  5. POSACONAZOLE [Interacting]
     Active Substance: POSACONAZOLE
     Indication: MUCORMYCOSIS
     Route: 048
  6. DEXAMETHASONE. [Concomitant]
     Active Substance: DEXAMETHASONE
     Indication: PLASMA CELL MYELOMA

REACTIONS (3)
  - Drug interaction [Unknown]
  - Hypokalaemia [Recovered/Resolved]
  - Hypertension [Recovered/Resolved]
